FAERS Safety Report 9044635 (Version 1)
Quarter: 2013Q1

REPORT INFORMATION
  Report Type: Spontaneous
  Country: US (occurrence: US)
  Receive Date: 20130130
  Receipt Date: 20130130
  Transmission Date: 20140127
  Serious: No
  Sender: FDA-Public Use
  Company Number: US-BAYER-2013-007849

PATIENT
  Age: 75 Year
  Sex: Female
  Weight: 74.83 kg

DRUGS (11)
  1. ALEVE CAPLET/TABLET,MIDOL EXTENDED RELIEF CAPLET [Suspect]
     Indication: ARTHRITIS
     Dosage: 1 DF, QD
     Route: 048
     Dates: start: 201212
  2. ONE-A-DAY ESSENTIAL [Concomitant]
     Dosage: UNK UNK, QD
  3. BAYER ASPIRIN REGIMEN ADULT LOW STRENGTH [Concomitant]
     Indication: ISCHAEMIC HEART DISEASE PROPHYLAXIS
  4. CALCIUM [Concomitant]
  5. PULMICORT [Concomitant]
  6. NEXIUM [Concomitant]
     Indication: DYSPEPSIA
  7. PAXIL [Concomitant]
  8. DAYPRO [Concomitant]
     Indication: ARTHRITIS
  9. FIBERCON [Concomitant]
  10. FLONASE [Concomitant]
  11. LORATADIN [Concomitant]

REACTIONS (1)
  - Incorrect drug administration duration [None]
